FAERS Safety Report 6305114-7 (Version None)
Quarter: 2009Q3

REPORT INFORMATION
  Report Type: 
  Country: None (occurrence: None)
  Receive Date: 20090811
  Receipt Date: 20090730
  Transmission Date: 20100115
  Serious: Yes (Other)
  Sender: FDA-Public Use
  Company Number: GB-PFIZER INC-2009247791

PATIENT
  Age: 31 Year

DRUGS (3)
  1. CHAMPIX [Suspect]
     Indication: SMOKING CESSATION THERAPY
     Dosage: 1 MG, UNIT DOSE
     Route: 048
     Dates: start: 20071119
  2. CHAMPIX [Suspect]
     Dosage: UNK
     Route: 048
     Dates: start: 20090520
  3. CILEST [Concomitant]
     Dosage: 1 DOSE FORM DAILY
     Route: 048
     Dates: start: 20081029

REACTIONS (2)
  - RECTAL DISCHARGE [None]
  - RECTAL HAEMORRHAGE [None]
